FAERS Safety Report 8570640-7 (Version None)
Quarter: 2012Q3

REPORT INFORMATION
  Report Type: 
  Country: None (occurrence: None)
  Receive Date: 20120804
  Receipt Date: 20120731
  Transmission Date: 20120928
  Serious: No
  Sender: FDA-Public Use
  Company Number: US-ASTRAZENECA-2012SE54402

PATIENT
  Age: 65 Year
  Sex: Female

DRUGS (2)
  1. NEXIUM [Suspect]
     Route: 048
  2. ZOLOFT [Concomitant]

REACTIONS (4)
  - DRUG DOSE OMISSION [None]
  - VOMITING [None]
  - DYSPEPSIA [None]
  - NAUSEA [None]
